FAERS Safety Report 9511093 (Version 3)
Quarter: 2013Q3

REPORT INFORMATION
  Report Type: Spontaneous
  Country: US (occurrence: None)
  Receive Date: 20130905
  Receipt Date: 20130912
  Transmission Date: 20140515
  Serious: Yes (Death)
  Sender: FDA-Public Use
  Company Number: 2013SGN00507

PATIENT
  Age: 63 Year
  Sex: Female

DRUGS (5)
  1. ADCETRIS [Suspect]
     Indication: HODGKIN^S DISEASE
     Route: 042
     Dates: start: 20130409, end: 20130524
  2. LOMOTIL (ATROPINE SULFATE, DIPHENOXYLATE HYDROCHLORIDE) [Concomitant]
  3. HYDROMORPHONE (HYDROMORPHONE) [Concomitant]
  4. ONDANSETRON (ONDANSETRON) [Concomitant]
  5. MIRALAX (MACROGOL) [Concomitant]

REACTIONS (3)
  - Death [None]
  - Disease progression [None]
  - Hodgkin^s disease [None]
